FAERS Safety Report 9221113 (Version 2)
Quarter: 2013Q2

REPORT INFORMATION
  Report Type: Report from Study
  Country: US (occurrence: US)
  Receive Date: 20130409
  Receipt Date: 20130429
  Transmission Date: 20140414
  Serious: Yes (Life-Threatening)
  Sender: FDA-Public Use
  Company Number: US-WATSON-2013-06586

PATIENT
  Age: 41 Year
  Sex: Female

DRUGS (2)
  1. TRELSTAR (WATSON LABORATORIES) [Suspect]
     Indication: BREAST CANCER
     Dosage: 3.75 MG ONCE A MONTH
     Route: 030
     Dates: start: 20100716
  2. TAMOXIFEN CITRATE (WATSON LABORATORIES) [Suspect]
     Indication: BREAST CANCER
     Dosage: 20 MG ONCE A MONTH
     Route: 048
     Dates: start: 20101229

REACTIONS (1)
  - Suicidal ideation [Recovered/Resolved with Sequelae]
